FAERS Safety Report 13738996 (Version 1)
Quarter: 2017Q3

REPORT INFORMATION
  Report Type: Report from Study
  Country: US (occurrence: US)
  Receive Date: 20170710
  Receipt Date: 20170710
  Transmission Date: 20171127
  Serious: No
  Sender: FDA-Public Use
  Company Number: US-SAOL THERAPEUTICS-0701255673

PATIENT
  Age: 35 Year
  Sex: Female

DRUGS (12)
  1. DILAUDID [Suspect]
     Active Substance: HYDROMORPHONE HYDROCHLORIDE
     Dosage: 0.250 0MG, \DAY
  2. CLONIDINE. [Suspect]
     Active Substance: CLONIDINE
     Dosage: 34.993 ?G, \DAY
     Route: 037
     Dates: end: 20160202
  3. DILAUDID [Suspect]
     Active Substance: HYDROMORPHONE HYDROCHLORIDE
     Dosage: 349.93 ?G, \DAY
     Route: 037
     Dates: end: 20160202
  4. NUCYNTA [Suspect]
     Active Substance: TAPENTADOL HYDROCHLORIDE
  5. NUCYNTA ER [Suspect]
     Active Substance: TAPENTADOL HYDROCHLORIDE
  6. COMPOUNDED BACLOFEN [Suspect]
     Active Substance: BACLOFEN
     Indication: PAIN
     Dosage: 124.99 ?G, \DAY
     Dates: start: 20160202
  7. BUPIVACAINE. [Suspect]
     Active Substance: BUPIVACAINE
     Dosage: 7.418 6UNK, UNK
     Route: 037
     Dates: end: 20160202
  8. BUPIVACAINE. [Suspect]
     Active Substance: BUPIVACAINE
     Dosage: 5.000 MG, \DAY
     Dates: start: 20160202
  9. TYLENOL WITH CODEINE [Suspect]
     Active Substance: ACETAMINOPHEN\CODEINE PHOSPHATE
  10. CLONIDINE. [Suspect]
     Active Substance: CLONIDINE
     Dosage: 62.50 ?G, \DAY
     Dates: start: 20160202
  11. COMPOUNDED BACLOFEN [Suspect]
     Active Substance: BACLOFEN
     Indication: PAIN
     Dosage: 133.97 ?G, \DAY
     Route: 037
     Dates: end: 20160202
  12. TIZANIDINE. [Suspect]
     Active Substance: TIZANIDINE

REACTIONS (5)
  - Adverse drug reaction [Not Recovered/Not Resolved]
  - Agitation [Not Recovered/Not Resolved]
  - Medical device site pain [Not Recovered/Not Resolved]
  - Hypoaesthesia [Not Recovered/Not Resolved]
  - Dizziness [Not Recovered/Not Resolved]

NARRATIVE: CASE EVENT DATE: 20160202
